FAERS Safety Report 5164995-3 (Version None)
Quarter: 2006Q4

REPORT INFORMATION
  Report Type: 
  Country: None (occurrence: None)
  Receive Date: 20061205
  Receipt Date: 20061130
  Transmission Date: 20070319
  Serious: Yes (Hospitalization)
  Sender: FDA-Public Use
  Company Number: QA-BOEHRINGER INGELHEIM PHARMACEUTICALS, INC.-2006-DE-06343GD

PATIENT
  Age: 40 Year
  Sex: Male

DRUGS (3)
  1. ATROVENT [Suspect]
     Indication: DYSPNOEA
     Route: 055
  2. VENTOLIN [Suspect]
     Indication: DYSPNOEA
     Route: 055
  3. METHYLPREDNISOLONE [Suspect]
     Indication: DYSPNOEA
     Route: 042

REACTIONS (1)
  - CONDITION AGGRAVATED [None]
